FAERS Safety Report 25727925 (Version 1)
Quarter: 2025Q3

REPORT INFORMATION
  Report Type: Spontaneous
  Country: PH (occurrence: PH)
  Receive Date: 20250826
  Receipt Date: 20250826
  Transmission Date: 20251020
  Serious: Yes (Hospitalization, Other)
  Sender: ACCORD
  Company Number: PH-Accord-501022

PATIENT
  Age: 56 Year
  Sex: Female

DRUGS (10)
  1. CARMUSTINE [Suspect]
     Active Substance: CARMUSTINE
     Indication: Chemotherapy
     Dates: start: 202304
  2. ETOPOSIDE [Suspect]
     Active Substance: ETOPOSIDE
     Indication: Chemotherapy
     Dates: start: 202304
  3. CYTARABINE [Suspect]
     Active Substance: CYTARABINE
     Indication: Chemotherapy
     Dates: start: 202304
  4. THYMOCYTE IMMUNE GLOBULIN NOS [Suspect]
     Active Substance: THYMOCYTE IMMUNE GLOBULIN NOS
     Indication: Chemotherapy
     Dates: start: 202304
  5. AMOXICILLIN\CLAVULANATE POTASSIUM [Suspect]
     Active Substance: AMOXICILLIN\CLAVULANATE POTASSIUM
     Indication: Antibiotic prophylaxis
     Dates: start: 202304
  6. FLUCONAZOLE [Suspect]
     Active Substance: FLUCONAZOLE
     Indication: Antifungal prophylaxis
     Dates: start: 202304
  7. MELPHALAN [Suspect]
     Active Substance: MELPHALAN
     Indication: Chemotherapy
     Dates: start: 202304
  8. METRONIDAZOLE [Suspect]
     Active Substance: METRONIDAZOLE
     Indication: Antibiotic prophylaxis
     Dates: start: 202304
  9. SULFAMETHOXAZOLE\TRIMETHOPRIM [Suspect]
     Active Substance: SULFAMETHOXAZOLE\TRIMETHOPRIM
     Indication: Antibiotic prophylaxis
     Dates: start: 202304
  10. VALACYCLOVIR HYDROCHLORIDE [Suspect]
     Active Substance: VALACYCLOVIR HYDROCHLORIDE
     Indication: Antiviral prophylaxis
     Dates: start: 202304

REACTIONS (1)
  - Febrile neutropenia [Unknown]

NARRATIVE: CASE EVENT DATE: 20230101
